FAERS Safety Report 6631762-0 (Version None)
Quarter: 2010Q1

REPORT INFORMATION
  Report Type: 
  Country: None (occurrence: None)
  Receive Date: 20100312
  Receipt Date: 20100302
  Transmission Date: 20100710
  Serious: Yes (Other)
  Sender: FDA-Public Use
  Company Number: US-JNJFOC-20100300985

PATIENT
  Age: 27 Year
  Sex: Male
  Weight: 63.5 kg

DRUGS (6)
  1. INVEGA SUSTENNA [Suspect]
     Indication: SCHIZOPHRENIA
     Route: 030
  2. INVEGA SUSTENNA [Suspect]
     Route: 030
  3. INVEGA SUSTENNA [Suspect]
     Route: 030
  4. TRAMADOL HCL [Suspect]
     Indication: TOOTHACHE
     Dosage: ^PRESCRIBED 10 TABLETS TOTAL^
  5. COGENTIN [Concomitant]
     Indication: AKATHISIA
     Route: 048
  6. LEXAPRO [Concomitant]
     Indication: DEPRESSION
     Route: 048

REACTIONS (3)
  - DRUG ABUSE [None]
  - SEDATION [None]
  - THERAPEUTIC RESPONSE DECREASED [None]
